FAERS Safety Report 4854948-4 (Version None)
Quarter: 2005Q4

REPORT INFORMATION
  Report Type: 
  Country: None (occurrence: None)
  Receive Date: 20051213
  Receipt Date: 20051207
  Transmission Date: 20060501
  Serious: Yes (Hospitalization)
  Sender: FDA-Public Use
  Company Number: TAP2005Q02153

PATIENT
  Age: 86 Year
  Sex: Male

DRUGS (13)
  1. LUPRON DEPOT-4 [Suspect]
     Indication: PROSTATE CANCER
     Dosage: 30 MG (30 MG, 1 IN 4 M)
     Route: 030
     Dates: start: 20050823
  2. LIPIDIL SUPRA (FENOFIBRATE) [Concomitant]
  3. FLOMAX (MORNIFLUMATE) [Concomitant]
  4. PANTOLOC (PANTOPRAZOLE) [Concomitant]
  5. METOPROLOL [Concomitant]
  6. COVERSIL (PERINDOPRIL) [Concomitant]
  7. SEROQUEL [Concomitant]
  8. HYDROCHLOROTHIAZIDE [Concomitant]
  9. SYNTHROID [Concomitant]
  10. PLAVIX [Concomitant]
  11. NORVASC [Concomitant]
  12. TEGRETOL [Concomitant]
  13. EYE DROPS (OPHTHALMOLOGICALS) [Concomitant]

REACTIONS (1)
  - CARDIAC PACEMAKER MALFUNCTION [None]
